FAERS Safety Report 7864131 (Version 2)
Quarter: 2013Q3

REPORT INFORMATION
  Report Type: Spontaneous
  Country: GB (occurrence: None)
  Receive Date: 20110222
  Receipt Date: 20130708
  Transmission Date: 20140515
  Serious: Yes (Hospitalization)
  Sender: FDA-Public Use
  Company Number: AUR-APL-2011-00435

PATIENT
  Age: 52 Year
  Sex: Male

DRUGS (5)
  1. SIMVASTATIN (SIMVASTATIN) [Suspect]
     Indication: PRODUCT USED FOR UNKNOWN INDICATION
     Dosage: 40MG-DAILY-ORAL
  2. FUSIDIC ACID [Suspect]
     Indication: OSTEOMYELITIS
     Dosage: (500MG, 3 IN 1 D)ORAL
     Route: 048
  3. HUMALOG [Concomitant]
  4. FLUCLOXACILLIN [Concomitant]
  5. AMLODIPINE [Concomitant]

REACTIONS (9)
  - Quadriparesis [None]
  - Glycosylated haemoglobin increased [None]
  - Guillain-Barre syndrome [None]
  - Respiratory failure [None]
  - Rhabdomyolysis [None]
  - Renal failure acute [None]
  - Drug interaction [None]
  - Asthenia [None]
  - Haemodialysis [None]
